FAERS Safety Report 5239803-2 (Version None)
Quarter: 2007Q1

REPORT INFORMATION
  Report Type: 
  Country: None (occurrence: None)
  Receive Date: 20070216
  Receipt Date: 20070208
  Transmission Date: 20070707
  Serious: Yes (Disabling)
  Sender: FDA-Public Use
  Company Number: JP-ELI_LILLY_AND_COMPANY-JP200702002867

PATIENT
  Age: 45 Year
  Sex: Female

DRUGS (3)
  1. GEMZAR [Suspect]
     Indication: LUNG NEOPLASM MALIGNANT
     Dosage: 1000 MG/M2, OTHER
     Route: 042
     Dates: start: 20070101
  2. CISPLATIN [Concomitant]
     Indication: LUNG NEOPLASM MALIGNANT
     Dosage: 95 MG, UNK
     Dates: start: 20070101, end: 20070101
  3. CARBOPLATIN [Concomitant]
     Indication: LUNG NEOPLASM MALIGNANT
     Dosage: AUC 4
     Dates: start: 20070201

REACTIONS (3)
  - ANOREXIA [None]
  - NAUSEA [None]
  - PAROSMIA [None]
